FAERS Safety Report 8681315 (Version 2)
Quarter: 2013Q1

REPORT INFORMATION
  Report Type: Spontaneous
  Country: US (occurrence: None)
  Receive Date: 20120706
  Receipt Date: 20130219
  Transmission Date: 20140127
  Serious: Yes (Hospitalization, Other)
  Sender: FDA-Public Use
  Company Number: DSU-2012-05220

PATIENT
  Age: 65 Year
  Sex: Female

DRUGS (2)
  1. OLMESARTAN MEDOXOMIL [Suspect]
     Indication: HYPERTENSION
     Route: 048
     Dates: start: 200602, end: 20100114
  2. PREMARIN (ESTROGENS CONJUGATED) (ESTROGENS CONJUGATED) [Concomitant]

REACTIONS (7)
  - Malabsorption [None]
  - Diarrhoea [None]
  - Weight decreased [None]
  - Urinary tract infection [None]
  - Syncope [None]
  - Dehydration [None]
  - Coeliac disease [None]
